FAERS Safety Report 4785114-9 (Version None)
Quarter: 2005Q3

REPORT INFORMATION
  Report Type: 
  Country: None (occurrence: None)
  Receive Date: 20050928
  Receipt Date: 20050912
  Transmission Date: 20060218
  Serious: Yes (Hospitalization)
  Sender: FDA-Public Use
  Company Number: EWC050945644

PATIENT
  Age: 44 Year
  Sex: Female
  Weight: 43 kg

DRUGS (2)
  1. OLANZAPINE [Suspect]
     Indication: MANIA
     Dosage: 10 MG/1 DAY
     Dates: start: 20050720
  2. DEPAKENE [Concomitant]

REACTIONS (6)
  - ALANINE AMINOTRANSFERASE INCREASED [None]
  - ASPARTATE AMINOTRANSFERASE INCREASED [None]
  - BIPOLAR I DISORDER [None]
  - BLOOD SODIUM DECREASED [None]
  - HAEMOGLOBIN DECREASED [None]
  - NEUTROPHIL PERCENTAGE INCREASED [None]
